FAERS Safety Report 5308957-1 (Version None)
Quarter: 2007Q2

REPORT INFORMATION
  Report Type: 
  Country: None (occurrence: None)
  Receive Date: 20070426
  Receipt Date: 20070418
  Transmission Date: 20071010
  Serious: Yes (Hospitalization)
  Sender: FDA-Public Use
  Company Number: CA-BOEHRINGER INGELHEIM PHARMACEUTICALS, INC.-2007-CN-00344CN

PATIENT
  Sex: Male
  Weight: 73 kg

DRUGS (1)
  1. MICARDIS [Suspect]
     Indication: ESSENTIAL HYPERTENSION
     Dates: start: 20061215

REACTIONS (2)
  - ANXIETY [None]
  - PANIC ATTACK [None]
